FAERS Safety Report 6033874-1 (Version None)
Quarter: 2009Q1

REPORT INFORMATION
  Report Type: 
  Country: None (occurrence: None)
  Receive Date: 20090108
  Receipt Date: 20090108
  Transmission Date: 20090719
  Serious: Yes (Hospitalization, Other)
  Sender: FDA-Public Use
  Company Number: None

PATIENT
  Sex: Male
  Weight: 75 kg

DRUGS (1)
  1. THERACYS [Suspect]
     Indication: BLADDER CANCER
     Dosage: 81 MG / 53 ML WEEKLY INTRA VESICAL
     Route: 043
     Dates: start: 20081124

REACTIONS (9)
  - BLOOD LACTIC ACID INCREASED [None]
  - CATHETER SITE PAIN [None]
  - CHILLS [None]
  - COUGH [None]
  - HYPOTENSION [None]
  - ILL-DEFINED DISORDER [None]
  - PYREXIA [None]
  - TREMOR [None]
  - WHITE BLOOD CELL COUNT DECREASED [None]
